FAERS Safety Report 5736473-1 (Version None)
Quarter: 2008Q2

REPORT INFORMATION
  Report Type: 
  Country: None (occurrence: None)
  Receive Date: 20080509
  Receipt Date: 20080509
  Transmission Date: 20081010
  Serious: Yes (Life-Threatening, Disabling, Other)
  Sender: FDA-Public Use
  Company Number: None

PATIENT
  Weight: 117.9352 kg

DRUGS (1)
  1. DIGOXIN   0.0125MG. YELLOW BERTEK [Suspect]
     Indication: CARDIAC DISORDER
     Dosage: 1 TABLET DAILY PO
     Route: 048
     Dates: start: 20050801, end: 20080501

REACTIONS (7)
  - BALANCE DISORDER [None]
  - DIZZINESS [None]
  - DYSARTHRIA [None]
  - HYPOTENSION [None]
  - SOMNOLENCE [None]
  - SWOLLEN TONGUE [None]
  - VISION BLURRED [None]
